FAERS Safety Report 9313139 (Version 2)
Quarter: 2013Q3

REPORT INFORMATION
  Report Type: Spontaneous
  Country: US (occurrence: US)
  Receive Date: 20130528
  Receipt Date: 20130715
  Transmission Date: 20140515
  Serious: No
  Sender: FDA-Public Use
  Company Number: US-ASTRAZENECA-2013SE34912

PATIENT
  Age: 83 Year
  Sex: Male

DRUGS (4)
  1. SYMBICORT [Suspect]
     Indication: CHRONIC OBSTRUCTIVE PULMONARY DISEASE
     Dosage: 160/4.5 MCG, 2 PUFFS BID
     Route: 055
     Dates: start: 201202
  2. FUROSEMIDE [Concomitant]
  3. POTASSIUM [Concomitant]
  4. DUONEB [Concomitant]

REACTIONS (2)
  - Dyspnoea [Unknown]
  - Drug dose omission [Unknown]
